FAERS Safety Report 6253766-2 (Version None)
Quarter: 2009Q2

REPORT INFORMATION
  Report Type: 
  Country: None (occurrence: None)
  Receive Date: 20090630
  Receipt Date: 20090618
  Transmission Date: 20091009
  Serious: Yes (Other)
  Sender: FDA-Public Use
  Company Number: POMP-1000570

PATIENT
  Age: 10 Year
  Sex: Female
  Weight: 22.5 kg

DRUGS (1)
  1. MYOZYME [Suspect]
     Indication: GLYCOGEN STORAGE DISEASE TYPE II
     Dosage: 20 MG/KG, QOW, INTRAVENOUS
     Route: 042
     Dates: start: 20080428, end: 20090418

REACTIONS (4)
  - COLD SWEAT [None]
  - INFUSION RELATED REACTION [None]
  - PULSE PRESSURE DECREASED [None]
  - RESPIRATORY DISTRESS [None]
